FAERS Safety Report 9105675 (Version 1)
Quarter: 2013Q1

REPORT INFORMATION
  Report Type: Report from Study
  Country: AE (occurrence: AE)
  Receive Date: 20130220
  Receipt Date: 20130220
  Transmission Date: 20140127
  Serious: Yes (Other)
  Sender: FDA-Public Use
  Company Number: AE-ASTRAZENECA-2013SE09855

PATIENT
  Sex: Male

DRUGS (3)
  1. BRILINTA [Suspect]
     Indication: ARTERIAL OCCLUSIVE DISEASE
     Route: 048
     Dates: start: 20130130, end: 20130207
  2. PLAVIX [Suspect]
     Indication: ANTIPLATELET THERAPY
     Route: 048
  3. UNSPECIFIED (4-6) MEDICATIONS [Concomitant]

REACTIONS (5)
  - Chest pain [Unknown]
  - Hypertension [Unknown]
  - Pain in extremity [Unknown]
  - Pain in extremity [Unknown]
  - Headache [Unknown]
